FAERS Safety Report 11914736 (Version 1)
Quarter: 2016Q1

REPORT INFORMATION
  Report Type: Spontaneous
  Country: US (occurrence: US)
  Receive Date: 20160113
  Receipt Date: 20160113
  Transmission Date: 20160526
  Serious: Yes (Other)
  Sender: FDA-Public Use
  Company Number: US-BIOGEN-2015BI159627

PATIENT
  Sex: Female

DRUGS (1)
  1. AVONEX [Suspect]
     Active Substance: INTERFERON BETA-1A
     Indication: MULTIPLE SCLEROSIS
     Route: 030
     Dates: start: 19980715, end: 20101221

REACTIONS (5)
  - Influenza like illness [Recovered/Resolved]
  - Polycythaemia vera [Not Recovered/Not Resolved]
  - Stress [Unknown]
  - Multiple sclerosis [Unknown]
  - Injection site scar [Unknown]

NARRATIVE: CASE EVENT DATE: 1998
